FAERS Safety Report 22342140 (Version 4)
Quarter: 2024Q4

REPORT INFORMATION
  Report Type: Report from Study
  Country: CO (occurrence: CO)
  Receive Date: 20230519
  Receipt Date: 20241204
  Transmission Date: 20250114
  Serious: Yes (Hospitalization, Other)
  Sender: ABBVIE
  Company Number: CO-ABBVIE-4246784

PATIENT
  Age: 58 Year
  Sex: Female

DRUGS (4)
  1. HUMIRA [Suspect]
     Active Substance: ADALIMUMAB
     Indication: Hidradenitis
     Dosage: FORM STRENGTH: 40 MG
     Route: 058
     Dates: start: 20220531, end: 20221128
  2. RIFAMPIN [Suspect]
     Active Substance: RIFAMPIN
     Indication: Product used for unknown indication
     Route: 065
     Dates: start: 20221204, end: 20221212
  3. TRIMETHOPRIM [Suspect]
     Active Substance: TRIMETHOPRIM
     Indication: Inguinal mass
     Dosage: 1 TABLET,?FREQUENCY TEXT: AT NIGHTS,?LAST ADMIN DATE: 2023,?FORM STRENGTH: 800 MILLIGRAM
     Route: 048
     Dates: start: 202304
  4. TRIMETHOPRIM [Suspect]
     Active Substance: TRIMETHOPRIM
     Indication: Inguinal mass
     Route: 048
     Dates: start: 202410

REACTIONS (31)
  - Haematochezia [Not Recovered/Not Resolved]
  - Skin disorder [Not Recovered/Not Resolved]
  - Gastrointestinal disorder [Unknown]
  - Groin abscess [Recovering/Resolving]
  - Pain of skin [Not Recovered/Not Resolved]
  - Dizziness [Recovered/Resolved]
  - Skin necrosis [Recovered/Resolved]
  - Illness [Recovering/Resolving]
  - Sensory disturbance [Unknown]
  - Chest discomfort [Not Recovered/Not Resolved]
  - Thrombosis [Not Recovered/Not Resolved]
  - Memory impairment [Not Recovered/Not Resolved]
  - Vision blurred [Recovered/Resolved]
  - Hidradenitis [Recovering/Resolving]
  - Headache [Not Recovered/Not Resolved]
  - Acne [Recovering/Resolving]
  - Constipation [Not Recovered/Not Resolved]
  - Bloody discharge [Recovering/Resolving]
  - Pain [Recovered/Resolved]
  - Rash papular [Recovered/Resolved]
  - Pain [Recovering/Resolving]
  - Gastritis [Not Recovered/Not Resolved]
  - Pyrexia [Not Recovered/Not Resolved]
  - Feeling hot [Not Recovered/Not Resolved]
  - Head discomfort [Not Recovered/Not Resolved]
  - Sweat gland infection [Recovering/Resolving]
  - Wound infection [Recovering/Resolving]
  - Adverse drug reaction [Unknown]
  - Unevaluable event [Unknown]
  - Subcutaneous abscess [Recovering/Resolving]
  - Patient-device incompatibility [Recovering/Resolving]

NARRATIVE: CASE EVENT DATE: 20220101
